FAERS Safety Report 8183272-X (Version None)
Quarter: 2012Q1

REPORT INFORMATION
  Report Type: 
  Country: None (occurrence: None)
  Receive Date: 20120305
  Receipt Date: 20120220
  Transmission Date: 20120608
  Serious: Yes (Other)
  Sender: FDA-Public Use
  Company Number: IT-MYLANLABS-2012S1003762

PATIENT
  Age: 51 Year
  Sex: Female

DRUGS (2)
  1. MELOXICAM [Suspect]
     Indication: ARTHROSCOPY
     Route: 048
     Dates: start: 20120123, end: 20120128
  2. NADROPARIN CALCIUM [Concomitant]
     Indication: ARTHROSCOPY
     Dates: start: 20120123, end: 20120128

REACTIONS (1)
  - LIP OEDEMA [None]
